FAERS Safety Report 21114391 (Version 1)
Quarter: 2022Q3

REPORT INFORMATION
  Report Type: Other
  Country: US (occurrence: None)
  Receive Date: 20220721
  Receipt Date: 20220721
  Transmission Date: 20221027
  Serious: Yes (Death, Other)
  Sender: FDA-Public Use
  Company Number: US-Nivagen-000017

PATIENT
  Age: 66 Year
  Sex: Male

DRUGS (7)
  1. TEMOZOLOMIDE [Suspect]
     Active Substance: TEMOZOLOMIDE
     Indication: Product used for unknown indication
  2. CAPECITABINE [Concomitant]
     Active Substance: CAPECITABINE
     Indication: Product used for unknown indication
  3. CARBOPLATIN [Concomitant]
     Active Substance: CARBOPLATIN
     Indication: Product used for unknown indication
  4. ETOPOSIDE [Concomitant]
     Active Substance: ETOPOSIDE
     Indication: Product used for unknown indication
  5. PEMBROLIZUMAB [Concomitant]
     Active Substance: PEMBROLIZUMAB
     Indication: Metastases to liver
     Dosage: 200 MG ONCE EVERY THREE WEEKS
     Route: 042
  6. PACLITAXEL [Concomitant]
     Active Substance: PACLITAXEL
     Indication: Metastases to bone
     Dosage: THREE CYCLES
  7. ipilimumab/nivolumab [Concomitant]
     Indication: Product used for unknown indication

REACTIONS (9)
  - Carcinoid tumour [Fatal]
  - Metastases to liver [Recovering/Resolving]
  - Hepatic neoplasm [Unknown]
  - Metastases to bone [Unknown]
  - Hypermutation [Unknown]
  - Retroperitoneal lymphadenopathy [Recovering/Resolving]
  - Disease progression [Recovering/Resolving]
  - Therapy partial responder [Unknown]
  - Thyroid neoplasm [Unknown]
